FAERS Safety Report 8993127 (Version 1)
Quarter: 2013Q1

REPORT INFORMATION
  Report Type: Spontaneous
  Country: CH (occurrence: CH)
  Receive Date: 20130102
  Receipt Date: 20130102
  Transmission Date: 20140127
  Serious: Yes (Hospitalization)
  Sender: FDA-Public Use
  Company Number: CH-BAXTER-2012BAX028600

PATIENT
  Age: 74 Year
  Sex: Female

DRUGS (7)
  1. ENDOXAN 1 G [Suspect]
     Indication: BREAST CANCER
     Route: 065
  2. TAXOL [Suspect]
     Indication: BREAST CANCER
     Route: 042
     Dates: start: 20121115, end: 20121129
  3. AVASTIN [Suspect]
     Indication: BREAST CANCER
     Route: 042
     Dates: start: 20120920, end: 20121108
  4. AVASTIN [Suspect]
     Indication: PULMONARY EMBOLISM
  5. XELODA [Suspect]
     Indication: BREAST CANCER
     Route: 048
     Dates: start: 20120920, end: 20121108
  6. MST CONTINUS [Concomitant]
     Indication: PAIN
     Route: 048
  7. FRAGMIN [Concomitant]
     Indication: PRODUCT USED FOR UNKNOWN INDICATION
     Route: 058
     Dates: start: 20121108

REACTIONS (3)
  - Febrile neutropenia [Recovered/Resolved]
  - Pyrexia [Recovered/Resolved]
  - Pulmonary embolism [Recovered/Resolved]
